FAERS Safety Report 19190360 (Version 1)
Quarter: 2021Q2

REPORT INFORMATION
  Report Type: Spontaneous
  Country: DE (occurrence: DE)
  Receive Date: 20210428
  Receipt Date: 20210428
  Transmission Date: 20210717
  Serious: Yes (Hospitalization, Other)
  Sender: FDA-Public Use
  Company Number: NVSC2021DE088998

PATIENT
  Age: 77 Year
  Sex: Male

DRUGS (1)
  1. METOPROLOLSUCCINAT ? 1 A PHARMA 47,5 MG RETARDTABLETTEN [Suspect]
     Active Substance: METOPROLOL SUCCINATE
     Indication: HYPERTENSION
     Dosage: 23.75 MG, QD ABENDS ? TABLETTE
     Route: 065

REACTIONS (5)
  - Blood pressure systolic increased [Unknown]
  - Loss of consciousness [Unknown]
  - Drug ineffective [Unknown]
  - Product solubility abnormal [Unknown]
  - Product taste abnormal [Unknown]
